FAERS Safety Report 8842351 (Version 2)
Quarter: 2012Q4

REPORT INFORMATION
  Report Type: 
  Country: US (occurrence: US)
  Receive Date: 20121016
  Receipt Date: 20121207
  Transmission Date: 20130627
  Serious: Yes (Hospitalization)
  Sender: FDA-Public Use
  Company Number: US-GILEAD-2012-0060907

PATIENT
  Age: 69 Year
  Sex: Female

DRUGS (11)
  1. LETAIRIS [Suspect]
     Indication: PULMONARY HYPERTENSION
     Dosage: 10 mg, UNK
     Route: 048
     Dates: start: 20120201
  2. LETAIRIS [Suspect]
     Indication: DIASTOLIC DYSFUNCTION
  3. ADCIRCA [Concomitant]
  4. PROZAC [Concomitant]
  5. COREG [Concomitant]
  6. ALLOPURINOL [Concomitant]
  7. PROTONIX [Concomitant]
  8. TEYLOR [Concomitant]
  9. FUNEX [Concomitant]
  10. LYRICA [Concomitant]
  11. TORSEMIDE [Concomitant]

REACTIONS (3)
  - Diastolic dysfunction [Recovering/Resolving]
  - Pleural effusion [Recovering/Resolving]
  - Dyspnoea [Unknown]
